FAERS Safety Report 21638443 (Version 1)
Quarter: 2022Q4

REPORT INFORMATION
  Report Type: Spontaneous
  Country: CN (occurrence: None)
  Receive Date: 20221124
  Receipt Date: 20221124
  Transmission Date: 20230112
  Serious: Yes (Other)
  Sender: FDA-Public Use
  Company Number: 2022A368525

PATIENT
  Age: 46 Year
  Sex: Female

DRUGS (1)
  1. BUDESONIDE\FORMOTEROL\GLYCOPYRRONIUM [Suspect]
     Active Substance: BUDESONIDE\FORMOTEROL\GLYCOPYRRONIUM
     Dosage: 120 PUFFS, TWO INHALATIONS IN THE MORNING AND TWO INHALATIONS IN THE EVENING.
     Route: 055

REACTIONS (3)
  - Pneumonitis [Unknown]
  - Wrong technique in product usage process [Unknown]
  - Product dose omission issue [Unknown]
